FAERS Safety Report 8055033-3 (Version None)
Quarter: 2012Q1

REPORT INFORMATION
  Report Type: 
  Country: None (occurrence: None)
  Receive Date: 20120119
  Receipt Date: 20120112
  Transmission Date: 20120608
  Serious: Yes (Other)
  Sender: FDA-Public Use
  Company Number: GB-PFIZER INC-2012010228

PATIENT
  Sex: Male
  Weight: 74 kg

DRUGS (4)
  1. DICLOFENAC [Concomitant]
     Dosage: 50 MG, UNK
     Route: 048
  2. OMEPRAZOLE [Concomitant]
     Dosage: 20 MG, UNK
     Route: 048
  3. NITRAZEPAM [Concomitant]
     Dosage: 5 MG, UNK
     Route: 048
  4. SULFASALAZINE [Suspect]
     Indication: ANKYLOSING SPONDYLITIS
     Dosage: 1 G, UNK
     Route: 048
     Dates: start: 20110901, end: 20111006

REACTIONS (7)
  - COLD SWEAT [None]
  - HYPERHIDROSIS [None]
  - ANAPHYLACTIC REACTION [None]
  - ERYTHEMA [None]
  - DIARRHOEA [None]
  - VOMITING [None]
  - RASH GENERALISED [None]
